FAERS Safety Report 13355155 (Version 1)
Quarter: 2017Q1

REPORT INFORMATION
  Report Type: Spontaneous
  Country: US (occurrence: US)
  Receive Date: 20170321
  Receipt Date: 20170321
  Transmission Date: 20170429
  Serious: No
  Sender: FDA-Public Use
  Company Number: US-BAUSCH-BL-2016-007449

PATIENT

DRUGS (4)
  1. CERAVE FACIAL MOISTURIZING LOTION PM [Suspect]
     Active Substance: COSMETICS
     Indication: SKIN EXFOLIATION
     Route: 065
  2. CERAVE FACIAL MOISTURIZING LOTION PM [Suspect]
     Active Substance: COSMETICS
     Indication: SEBORRHOEA
  3. CERAVE FACIAL MOISTURIZING LOTION PM [Suspect]
     Active Substance: COSMETICS
     Indication: ERYTHEMA
  4. RETIN-A [Suspect]
     Active Substance: TRETINOIN
     Indication: PRODUCT USED FOR UNKNOWN INDICATION
     Route: 065

REACTIONS (4)
  - Seborrhoea [Unknown]
  - Drug ineffective [Unknown]
  - Skin exfoliation [Unknown]
  - Erythema [Unknown]
